FAERS Safety Report 6254368-4 (Version None)
Quarter: 2009Q3

REPORT INFORMATION
  Report Type: 
  Country: None (occurrence: None)
  Receive Date: 20090702
  Receipt Date: 20090622
  Transmission Date: 20100115
  Serious: Yes (Other)
  Sender: FDA-Public Use
  Company Number: US-ROCHE-640023

PATIENT
  Age: 44 Year
  Sex: Female

DRUGS (2)
  1. ACCUTANE [Suspect]
     Dosage: THERAPY DURATION: 5-6 MONTHS
     Route: 048
     Dates: start: 19890830
  2. ACCUTANE [Suspect]
     Route: 048
     Dates: start: 19970101

REACTIONS (5)
  - DEAFNESS [None]
  - DRY SKIN [None]
  - EAR PAIN [None]
  - PAIN [None]
  - VISUAL ACUITY REDUCED [None]
